FAERS Safety Report 4490593-0 (Version None)
Quarter: 2004Q4

REPORT INFORMATION
  Report Type: 
  Country: None (occurrence: None)
  Receive Date: 20041102
  Receipt Date: 20041025
  Transmission Date: 20050328
  Serious: Yes (Disabling)
  Sender: FDA-Public Use
  Company Number: US-MERCK-0410USA03706

PATIENT
  Age: 41 Year
  Sex: Female

DRUGS (2)
  1. VIOXX [Suspect]
     Indication: ARTHRITIS
     Route: 048
     Dates: end: 20041025
  2. PREMARIN [Concomitant]
     Indication: ARTHRITIS
     Route: 065

REACTIONS (2)
  - CHEST PAIN [None]
  - DYSPHAGIA [None]
